FAERS Safety Report 11397106 (Version 4)
Quarter: 2015Q4

REPORT INFORMATION
  Report Type: Report from Study
  Country: CA (occurrence: CA)
  Receive Date: 20150819
  Receipt Date: 20151125
  Transmission Date: 20160304
  Serious: Yes (Hospitalization)
  Sender: FDA-Public Use
  Company Number: CA-JNJFOC-20150712111

PATIENT
  Age: 71 Year
  Sex: Female

DRUGS (2)
  1. IMBRUVICA [Suspect]
     Active Substance: IBRUTINIB
     Indication: CHRONIC LYMPHOCYTIC LEUKAEMIA
     Route: 048
     Dates: start: 20150713, end: 201510
  2. IMBRUVICA [Suspect]
     Active Substance: IBRUTINIB
     Indication: CHRONIC LYMPHOCYTIC LEUKAEMIA
     Route: 048
     Dates: start: 20151110

REACTIONS (11)
  - Joint swelling [Not Recovered/Not Resolved]
  - Diarrhoea [Recovered/Resolved]
  - Fatigue [Recovered/Resolved]
  - Rash [Not Recovered/Not Resolved]
  - Sleep disorder [Recovered/Resolved]
  - Scratch [Unknown]
  - Heart rate decreased [Recovered/Resolved]
  - Hyperhidrosis [Unknown]
  - Pain [Recovering/Resolving]
  - Contusion [Not Recovered/Not Resolved]
  - Biopsy [Not Recovered/Not Resolved]

NARRATIVE: CASE EVENT DATE: 20150713
